FAERS Safety Report 6667410-3 (Version None)
Quarter: 2010Q2

REPORT INFORMATION
  Report Type: 
  Country: None (occurrence: None)
  Receive Date: 20100405
  Receipt Date: 20100401
  Transmission Date: 20101027
  Serious: Yes (Life-Threatening, Hospitalization, Disabling)
  Sender: FDA-Public Use
  Company Number: PHHY2010TR09408

PATIENT
  Sex: Male
  Weight: 82 kg

DRUGS (2)
  1. EXFORGE [Suspect]
     Indication: HYPERTENSION
     Dosage: 1 TABLET PER DAY
     Route: 048
  2. INSULIN [Concomitant]

REACTIONS (1)
  - CREATININE RENAL CLEARANCE INCREASED [None]
